FAERS Safety Report 14266962 (Version 1)
Quarter: 2017Q4

REPORT INFORMATION
  Report Type: Spontaneous
  Country: US (occurrence: US)
  Receive Date: 20171211
  Receipt Date: 20171211
  Transmission Date: 20180321
  Serious: Yes (Other)
  Sender: FDA-Public Use
  Company Number: US-TEVA-808232USA

PATIENT
  Sex: Female

DRUGS (3)
  1. ATOMOXETINE. [Suspect]
     Active Substance: ATOMOXETINE HYDROCHLORIDE
     Route: 065
     Dates: start: 20170805
  2. ATOMOXETINE. [Suspect]
     Active Substance: ATOMOXETINE HYDROCHLORIDE
     Route: 065
     Dates: start: 2017
  3. ATOMOXETINE. [Suspect]
     Active Substance: ATOMOXETINE HYDROCHLORIDE
     Route: 065
     Dates: start: 2017

REACTIONS (6)
  - Suicidal ideation [Unknown]
  - Depression [Unknown]
  - Frustration tolerance decreased [Unknown]
  - Screaming [Unknown]
  - Mood swings [Unknown]
  - Anger [Unknown]

NARRATIVE: CASE EVENT DATE: 201708
